FAERS Safety Report 8052211-4 (Version None)
Quarter: 2012Q1

REPORT INFORMATION
  Report Type: 
  Country: None (occurrence: None)
  Receive Date: 20120111
  Receipt Date: 20120107
  Transmission Date: 20120608
  Serious: Yes (Hospitalization)
  Sender: FDA-Public Use
  Company Number: 2012SP001186

PATIENT
  Sex: Female

DRUGS (2)
  1. CERAZETTE (DESOGESTREL /00754001/) [Suspect]
     Indication: CONTRACEPTION
     Dosage: 75 MCG
     Dates: start: 20110929, end: 20111229
  2. CYCLOKAPRON [Concomitant]

REACTIONS (4)
  - PAIN IN EXTREMITY [None]
  - THROMBOSIS [None]
  - VARICOSE VEIN [None]
  - CHEST PAIN [None]
